FAERS Safety Report 4948288-2 (Version None)
Quarter: 2006Q1

REPORT INFORMATION
  Report Type: 
  Country: None (occurrence: None)
  Receive Date: 20060313
  Receipt Date: 20060307
  Transmission Date: 20060701
  Serious: Yes (Hospitalization)
  Sender: FDA-Public Use
  Company Number: 219247

PATIENT
  Age: 75 Year
  Sex: Male

DRUGS (8)
  1. RITUXAN [Suspect]
     Indication: DIFFUSE LARGE B-CELL LYMPHOMA
     Dosage: 600 MG, INTRAVENOUS
     Route: 042
     Dates: start: 20040805, end: 20050111
  2. CYCLOPHOSPHAMIDE [Concomitant]
  3. VINCRISTINE [Concomitant]
  4. DOXORUBICIN HCL [Concomitant]
  5. PREDNISONE TAB [Concomitant]
  6. SENNA [Concomitant]
  7. EPIRUBICIN [Concomitant]
  8. PREDNISOLONE [Concomitant]

REACTIONS (3)
  - PNEUMONIA [None]
  - WHITE BLOOD CELL COUNT DECREASED [None]
  - WHITE BLOOD CELL COUNT INCREASED [None]
